FAERS Safety Report 6666485-5 (Version None)
Quarter: 2010Q2

REPORT INFORMATION
  Report Type: 
  Country: None (occurrence: None)
  Receive Date: 20100402
  Receipt Date: 20100323
  Transmission Date: 20101027
  Serious: Yes (Hospitalization)
  Sender: FDA-Public Use
  Company Number: GB-AMGEN-QUU401244

PATIENT
  Sex: Male

DRUGS (15)
  1. NEULASTA [Suspect]
     Indication: CHEMOTHERAPY
     Route: 058
     Dates: end: 20091107
  2. RITUXIMAB [Suspect]
     Route: 042
     Dates: start: 20091028, end: 20091029
  3. PREDNISOLONE [Suspect]
     Route: 048
     Dates: start: 20091029, end: 20091101
  4. CYCLOPHOSPHAMIDE [Suspect]
     Route: 042
     Dates: start: 20091029, end: 20091029
  5. GEMCITABINE HCL [Suspect]
     Route: 042
     Dates: start: 20091029, end: 20091029
  6. VINCRISTINE [Suspect]
     Route: 042
     Dates: start: 20091029, end: 20091029
  7. TACROLIMUS [Concomitant]
     Dates: start: 19931201
  8. AZATHIOPRINE SODIUM [Concomitant]
     Dates: start: 19931204, end: 20091028
  9. FELODIPINE [Concomitant]
     Dates: start: 19950101, end: 20091104
  10. PAMIDRONATE DISODIUM [Concomitant]
     Dates: start: 20091027, end: 20091027
  11. SODIUM CHLORIDE [Concomitant]
     Route: 042
     Dates: start: 20091027, end: 20091027
  12. ALLOPURINOL [Concomitant]
     Dates: start: 20091028
  13. SULFAMETHOXAZOLE AND TRIMETHOPRIM [Concomitant]
     Dates: start: 20091028
  14. METOCLOPRAMIDE [Concomitant]
     Dates: start: 20091104
  15. CORSODYL [Concomitant]
     Dates: start: 20091028

REACTIONS (15)
  - ABDOMINAL PAIN [None]
  - BLOOD POTASSIUM INCREASED [None]
  - C-REACTIVE PROTEIN INCREASED [None]
  - CELLULITIS [None]
  - CHEST X-RAY ABNORMAL [None]
  - CONSTIPATION [None]
  - HYPERHIDROSIS [None]
  - HYPOXIA [None]
  - INFUSION RELATED REACTION [None]
  - INFUSION SITE REACTION [None]
  - LOWER RESPIRATORY TRACT INFECTION [None]
  - MALAISE [None]
  - PYREXIA [None]
  - TACHYCARDIA [None]
  - THROMBOSIS [None]
